FAERS Safety Report 21955679 (Version 9)
Quarter: 2025Q1

REPORT INFORMATION
  Report Type: Spontaneous
  Country: US (occurrence: US)
  Receive Date: 20230206
  Receipt Date: 20250321
  Transmission Date: 20250408
  Serious: Yes (Death, Other)
  Sender: NOVARTIS
  Company Number: US-002147023-NVSC2023US026085

PATIENT
  Age: 77 Year
  Sex: Male
  Weight: 118 kg

DRUGS (1)
  1. PLUVICTO [Suspect]
     Active Substance: LUTETIUM LU-177 VIPIVOTIDE TETRAXETAN
     Indication: Prostate cancer metastatic
     Route: 042
     Dates: start: 20230103, end: 20230510

REACTIONS (9)
  - Prostate cancer metastatic [Fatal]
  - Malignant neoplasm progression [Fatal]
  - Metastases to liver [Fatal]
  - Pneumonia [Unknown]
  - Dyspnoea [Unknown]
  - Confusional state [Unknown]
  - Bone pain [Unknown]
  - Ill-defined disorder [Unknown]
  - Full blood count decreased [Unknown]

NARRATIVE: CASE EVENT DATE: 20230522
